FAERS Safety Report 7946930-5 (Version None)
Quarter: 2011Q4

REPORT INFORMATION
  Report Type: 
  Country: None (occurrence: None)
  Receive Date: 20111129
  Receipt Date: 20111122
  Transmission Date: 20120403
  Serious: Yes (Life-Threatening, Hospitalization, Other)
  Sender: FDA-Public Use
  Company Number: US-ASTRAZENECA-2011SE49541

PATIENT
  Age: 69 Year
  Sex: Female
  Weight: 59.9 kg

DRUGS (29)
  1. SEROQUEL [Suspect]
     Indication: DEMENTIA
     Route: 048
     Dates: start: 20091001
  2. SEROQUEL [Suspect]
     Route: 048
  3. ALPRAZOLAM [Concomitant]
     Route: 048
     Dates: start: 20090101
  4. SEROQUEL [Suspect]
     Route: 048
     Dates: start: 20110301
  5. NAMENDA [Concomitant]
  6. ARICEPT [Concomitant]
  7. SEROQUEL [Suspect]
     Indication: DEPRESSION
     Route: 048
     Dates: start: 20091001
  8. SEROQUEL [Suspect]
     Route: 048
  9. SEROQUEL [Suspect]
     Route: 048
     Dates: start: 20100201
  10. SEROQUEL [Suspect]
     Route: 048
     Dates: start: 20100101
  11. SEROQUEL [Suspect]
     Route: 048
     Dates: start: 20100201
  12. SEROQUEL [Suspect]
     Route: 048
     Dates: start: 20110301
  13. SEROQUEL [Suspect]
     Route: 048
     Dates: start: 20110301
  14. SEROQUEL [Suspect]
     Route: 048
  15. SEROQUEL [Suspect]
     Route: 048
     Dates: end: 20110901
  16. SEROQUEL [Suspect]
     Route: 048
  17. SEROQUEL [Suspect]
     Route: 048
     Dates: start: 20100101
  18. SEROQUEL [Suspect]
     Route: 048
     Dates: end: 20110901
  19. SEROQUEL [Suspect]
     Route: 048
     Dates: end: 20110901
  20. CITALOPRAM [Concomitant]
     Indication: DEPRESSION
     Route: 048
     Dates: start: 20110501
  21. SEROQUEL [Suspect]
     Indication: DEMENTIA ALZHEIMER'S TYPE
     Route: 048
     Dates: start: 20091001
  22. SEROQUEL [Suspect]
     Route: 048
  23. SEROQUEL [Suspect]
     Route: 048
  24. METOPROLOL TARTRATE [Concomitant]
     Indication: HYPERTENSION
     Route: 048
  25. HYDROCHLOROTHIAZIDE [Concomitant]
     Indication: HYPERTENSION
     Route: 048
     Dates: start: 20110301
  26. SEROQUEL [Suspect]
     Route: 048
     Dates: start: 20100201
  27. SEROQUEL [Suspect]
     Route: 048
     Dates: start: 20100101
  28. LEXAPRO [Concomitant]
     Indication: DEPRESSION
     Route: 048
     Dates: start: 20070101, end: 20110501
  29. ALPRAZOLAM [Concomitant]
     Indication: DEPRESSION
     Route: 048
     Dates: start: 20050101, end: 20090101

REACTIONS (17)
  - OVERDOSE [None]
  - TRANSIENT ISCHAEMIC ATTACK [None]
  - ANXIETY [None]
  - AGITATION [None]
  - CONFUSIONAL STATE [None]
  - FALL [None]
  - TERMINAL STATE [None]
  - THERAPEUTIC RESPONSE UNEXPECTED [None]
  - PSYCHOTIC DISORDER [None]
  - CRYING [None]
  - LIFE EXPECTANCY SHORTENED [None]
  - APHASIA [None]
  - DEPRESSION [None]
  - SPEECH DISORDER [None]
  - OFF LABEL USE [None]
  - MOTOR DYSFUNCTION [None]
  - DYSPHAGIA [None]
